FAERS Safety Report 5886215-4 (Version None)
Quarter: 2008Q3

REPORT INFORMATION
  Report Type: 
  Country: None (occurrence: None)
  Receive Date: 20080917
  Receipt Date: 20080905
  Transmission Date: 20090109
  Serious: Yes (Hospitalization)
  Sender: FDA-Public Use
  Company Number: FR-ELI_LILLY_AND_COMPANY-FR200809001100

PATIENT
  Sex: Male

DRUGS (3)
  1. GEMZAR [Suspect]
     Indication: PANCREATIC CARCINOMA METASTATIC
     Dosage: 1000 MG/M2, UNKNOWN
     Route: 042
     Dates: start: 20080115, end: 20080115
  2. ELOXATIN [Concomitant]
     Indication: PANCREATIC CARCINOMA
     Dosage: 80 MG/M2, UNKNOWN
     Route: 042
     Dates: start: 20080115, end: 20080115
  3. PREVISCAN [Concomitant]
     Dosage: 20 MG (1DF), DAILY (1/D)
     Route: 065
     Dates: end: 20080115

REACTIONS (4)
  - ASTHENIA [None]
  - DIARRHOEA [None]
  - INTERNATIONAL NORMALISED RATIO INCREASED [None]
  - VOMITING [None]
